FAERS Safety Report 16188489 (Version 1)
Quarter: 2019Q2

REPORT INFORMATION
  Report Type: Spontaneous
  Country: US (occurrence: US)
  Receive Date: 20190412
  Receipt Date: 20190412
  Transmission Date: 20190711
  Serious: Yes (Other)
  Sender: FDA-Public Use
  Company Number: PHEH2019US015079

PATIENT
  Sex: Female

DRUGS (1)
  1. GLATOPA [Suspect]
     Active Substance: GLATIRAMER ACETATE
     Indication: MULTIPLE SCLEROSIS
     Dosage: 40 MG, Q3W (1ML)
     Route: 058
     Dates: start: 20180517

REACTIONS (3)
  - Splenic neoplasm malignancy unspecified [Unknown]
  - Renal cancer [Unknown]
  - Pain [Unknown]
